FAERS Safety Report 9828425 (Version 2)
Quarter: 2014Q1

REPORT INFORMATION
  Report Type: Spontaneous
  Country: KR (occurrence: KR)
  Receive Date: 20140117
  Receipt Date: 20140218
  Transmission Date: 20141002
  Serious: Yes (Other)
  Sender: FDA-Public Use
  Company Number: KR-NAPPMUNDI-DEU-2013-0013213

PATIENT
  Age: 50 Year
  Sex: Female

DRUGS (2)
  1. NORSPAN 5 UG/H [Suspect]
     Indication: ANALGESIC THERAPY
     Dosage: 5 MCG, Q1H
     Route: 062
     Dates: start: 201308
  2. NORSPAN 5 UG/H [Suspect]
     Dosage: 1.25 MCG, Q1H
     Route: 062
     Dates: start: 20131204

REACTIONS (5)
  - Drug withdrawal syndrome [Unknown]
  - Pain [Unknown]
  - Suicidal ideation [Unknown]
  - Intentional drug misuse [Unknown]
  - Depression [Unknown]
